FAERS Safety Report 18785703 (Version 1)
Quarter: 2021Q1

REPORT INFORMATION
  Report Type: Report from Study
  Country: IT (occurrence: IT)
  Receive Date: 20210125
  Receipt Date: 20210125
  Transmission Date: 20210419
  Serious: Yes (Other)
  Sender: FDA-Public Use
  Company Number: IT-PFIZER INC-2021049024

PATIENT
  Age: 15 Year
  Sex: Male

DRUGS (1)
  1. XANAX [Suspect]
     Active Substance: ALPRAZOLAM
     Dosage: 6 DF (3 MG), TOTAL DOSE
     Route: 048
     Dates: start: 20200905, end: 20200905

REACTIONS (4)
  - Toxicity to various agents [Recovered/Resolved]
  - Bradyphrenia [Recovered/Resolved]
  - Product use issue [Recovered/Resolved]
  - Sopor [Recovered/Resolved]

NARRATIVE: CASE EVENT DATE: 20200905
